FAERS Safety Report 4269594-3 (Version None)
Quarter: 2004Q1

REPORT INFORMATION
  Report Type: 
  Country: None (occurrence: None)
  Receive Date: 20040112
  Receipt Date: 20031229
  Transmission Date: 20041129
  Serious: Yes (Hospitalization)
  Sender: FDA-Public Use
  Company Number: 200314634FR

PATIENT
  Age: 47 Year
  Sex: Female
  Weight: 63 kg

DRUGS (4)
  1. RIFATER [Suspect]
     Indication: TUBERCULOSIS
     Dosage: PO
     Route: 048
     Dates: start: 20030801, end: 20031205
  2. MYAMBUTOL [Concomitant]
  3. ATARAX [Concomitant]
  4. PHENOXYMETHYLPENICILLIN (ORACILLINE) [Concomitant]

REACTIONS (13)
  - BURNING SENSATION [None]
  - CHEILITIS [None]
  - DERMATITIS BULLOUS [None]
  - EOSINOPHIL COUNT INCREASED [None]
  - MUCOUS MEMBRANE DISORDER [None]
  - NEUTROPHIL COUNT DECREASED [None]
  - ODYNOPHAGIA [None]
  - OEDEMA [None]
  - ORAL PAIN [None]
  - PRURITUS [None]
  - RED BLOOD CELL SEDIMENTATION RATE INCREASED [None]
  - STEVENS-JOHNSON SYNDROME [None]
  - WOUND SECRETION [None]
